FAERS Safety Report 4846998-9 (Version None)
Quarter: 2005Q4

REPORT INFORMATION
  Report Type: 
  Country: None (occurrence: None)
  Receive Date: 20051202
  Receipt Date: 20051121
  Transmission Date: 20060501
  Serious: Yes (Hospitalization, Other)
  Sender: FDA-Public Use
  Company Number: HQWYE664222NOV05

PATIENT
  Age: 57 Year
  Sex: Female

DRUGS (7)
  1. CEFIXIME CHEWABLE [Suspect]
     Dosage: 400.00 MG
     Route: 048
     Dates: start: 20050905, end: 20050912
  2. CIPROFLOXACIN HCL [Suspect]
     Dosage: 1000.00 MG
     Route: 048
     Dates: start: 20050905, end: 20050912
  3. DURAGESIC-100 [Concomitant]
  4. MORPHINE SULFATE [Concomitant]
  5. TEMESTA [Concomitant]
  6. STRESAM (ETIFOXINE) [Concomitant]
  7. ANASTROZOLE [Concomitant]

REACTIONS (4)
  - CONDITION AGGRAVATED [None]
  - HAEMOGLOBIN DECREASED [None]
  - NEUTROPENIA [None]
  - THROMBOCYTOPENIA [None]
